FAERS Safety Report 6527888-2 (Version None)
Quarter: 2010Q1

REPORT INFORMATION
  Report Type: 
  Country: None (occurrence: None)
  Receive Date: 20100106
  Receipt Date: 20091230
  Transmission Date: 20100710
  Serious: Yes (Hospitalization)
  Sender: FDA-Public Use
  Company Number: US-B.I. PHARMACEUTICALS,INC./RIDGEFIELD-2009-BP-14981PF

PATIENT
  Age: 36 Year
  Sex: Female

DRUGS (6)
  1. SPIRIVA [Suspect]
  2. CHANTIX [Suspect]
  3. PREDNISONE [Suspect]
  4. CARISOPRODOL [Suspect]
  5. SEROQUEL [Suspect]
  6. IPRATROPIUM [Suspect]

REACTIONS (5)
  - ANXIETY [None]
  - ASTHMA [None]
  - BLADDER DISORDER [None]
  - PSYCHOTIC DISORDER [None]
  - URINARY RETENTION [None]
